FAERS Safety Report 9275418 (Version 1)
Quarter: 2013Q2

REPORT INFORMATION
  Report Type: Spontaneous
  Country: US (occurrence: US)
  Receive Date: 20130507
  Receipt Date: 20130507
  Transmission Date: 20140414
  Serious: No
  Sender: FDA-Public Use
  Company Number: US-PFIZER INC-2013138097

PATIENT
  Age: 60 Year
  Sex: Female
  Weight: 61.2 kg

DRUGS (5)
  1. LEVOXYL [Suspect]
     Indication: HYPOTHYROIDISM
     Dosage: 75 UG, 1X/DAY
     Route: 048
  2. LEVOXYL [Suspect]
     Dosage: 88 UG, 1X/DAY
     Route: 048
  3. LEVOXYL [Suspect]
     Dosage: 100 UG, 1X/DAY
     Route: 048
  4. LEVOXYL [Suspect]
     Dosage: 88 UG, 1X/DAY
     Route: 048
  5. LEVOXYL [Suspect]
     Dosage: 75 UG, 1X/DAY
     Route: 048

REACTIONS (1)
  - Blood thyroid stimulating hormone abnormal [Unknown]
